FAERS Safety Report 5661146-3 (Version None)
Quarter: 2008Q1

REPORT INFORMATION
  Report Type: 
  Country: None (occurrence: None)
  Receive Date: 20080304
  Receipt Date: 20080223
  Transmission Date: 20080703
  Serious: Yes (Other)
  Sender: FDA-Public Use
  Company Number: CHPA2008US03388

PATIENT
  Age: 34 Year
  Sex: Female

DRUGS (3)
  1. EXCEDRIN (MIGRAINE) [Suspect]
     Indication: TOOTHACHE
     Dosage: 7 DF, ORAL
     Route: 048
     Dates: start: 20080223
  2. IBUPROFEN [Suspect]
     Indication: TOOTHACHE
     Dosage: 1200 MG, ORAL
     Route: 048
     Dates: start: 20080223
  3. ADVIL [Suspect]
     Indication: TOOTHACHE
     Dosage: 600 MG, ORAL
     Route: 048
     Dates: start: 20080223

REACTIONS (2)
  - CHEST PAIN [None]
  - OVERDOSE [None]
